FAERS Safety Report 6500610-1 (Version None)
Quarter: 2009Q4

REPORT INFORMATION
  Report Type: 
  Country: None (occurrence: None)
  Receive Date: 20091216
  Receipt Date: 20081202
  Transmission Date: 20100525
  Serious: No
  Sender: FDA-Public Use
  Company Number: A0758915A

PATIENT
  Age: 46 Year
  Sex: Female

DRUGS (1)
  1. NICOTINE POLACRILEX [Suspect]

REACTIONS (1)
  - ORAL DISCOMFORT [None]
